FAERS Safety Report 9676590 (Version 1)
Quarter: 2013Q4

REPORT INFORMATION
  Report Type: Spontaneous
  Country: GB (occurrence: GB)
  Receive Date: 20131107
  Receipt Date: 20131107
  Transmission Date: 20140711
  Serious: Yes (Hospitalization)
  Sender: FDA-Public Use
  Company Number: GB-SA-2013SA111434

PATIENT
  Age: 40 Year
  Sex: Male

DRUGS (2)
  1. INSULIN GLARGINE [Suspect]
     Indication: TYPE 1 DIABETES MELLITUS
     Dosage: DOSE:30 UNIT(S)
     Route: 065
  2. INSULIN GLARGINE [Suspect]
     Indication: TYPE 1 DIABETES MELLITUS
     Dosage: DOSE:600 UNIT(S)
     Route: 058

REACTIONS (7)
  - Hypokalaemia [Recovered/Resolved]
  - Intentional overdose [Unknown]
  - Hypomagnesaemia [Recovered/Resolved]
  - Hypoglycaemia [Recovered/Resolved]
  - Hyperhidrosis [Recovered/Resolved]
  - Tremor [Recovered/Resolved]
  - Unresponsive to stimuli [Recovered/Resolved]
